FAERS Safety Report 24550882 (Version 1)
Quarter: 2024Q4

REPORT INFORMATION
  Report Type: Spontaneous
  Country: US (occurrence: US)
  Receive Date: 20241025
  Receipt Date: 20241025
  Transmission Date: 20250115
  Serious: No
  Sender: PERRIGO
  Company Number: US-PERRIGO-24US001198

PATIENT
  Age: 24 Year
  Sex: Female

DRUGS (1)
  1. FAMOTIDINE [Suspect]
     Active Substance: FAMOTIDINE
     Indication: Product used for unknown indication
     Dosage: UNKNOWN, UNKNOWN
     Route: 048

REACTIONS (9)
  - Vertigo [Unknown]
  - Malaise [Unknown]
  - Middle insomnia [Unknown]
  - Hyperhidrosis [Unknown]
  - Heart rate increased [Unknown]
  - Asthenia [Unknown]
  - Arthralgia [Unknown]
  - Anxiety [Unknown]
  - Feeling abnormal [Unknown]
